FAERS Safety Report 18573887 (Version 1)
Quarter: 2020Q4

REPORT INFORMATION
  Report Type: Spontaneous
  Country: US (occurrence: US)
  Receive Date: 20201202
  Receipt Date: 20201202
  Transmission Date: 20210114
  Serious: No
  Sender: FDA-Public Use
  Company Number: None

PATIENT
  Age: 63 Year
  Sex: Female
  Weight: 112.95 kg

DRUGS (3)
  1. NORMAL SALINE [Concomitant]
     Active Substance: SODIUM CHLORIDE
     Dates: start: 20201127
  2. BAMLANIVIMAB 700 MG IV / 200 ML NACL [Suspect]
     Active Substance: BAMLANIVIMAB
     Indication: COVID-19
     Dosage: ?          OTHER FREQUENCY:ONCE;?
     Route: 042
     Dates: start: 20201127, end: 20201127
  3. DIPHENHYDRAMINE IV [Concomitant]
     Dates: start: 20201127

REACTIONS (2)
  - Chest discomfort [None]
  - Off label use [None]

NARRATIVE: CASE EVENT DATE: 20201127
